FAERS Safety Report 17808179 (Version 1)
Quarter: 2020Q2

REPORT INFORMATION
  Report Type: Spontaneous
  Country: US (occurrence: US)
  Receive Date: 20200520
  Receipt Date: 20200520
  Transmission Date: 20200714
  Serious: No
  Sender: FDA-Public Use
  Company Number: None

PATIENT
  Age: 57 Year
  Sex: Female
  Weight: 83.01 kg

DRUGS (2)
  1. ATOMOXETI NE [Concomitant]
     Dates: start: 20200512, end: 20200513
  2. ATOMOXETINE 10MG CAP TEVA [Suspect]
     Active Substance: ATOMOXETINE

REACTIONS (4)
  - Abdominal pain upper [None]
  - Nausea [None]
  - Vomiting [None]
  - Product substitution issue [None]
